FAERS Safety Report 24414715 (Version 1)
Quarter: 2024Q4

REPORT INFORMATION
  Report Type: Spontaneous
  Country: DE (occurrence: DE)
  Receive Date: 20241009
  Receipt Date: 20241009
  Transmission Date: 20250115
  Serious: Yes (Hospitalization)
  Sender: ROCHE
  Company Number: None

PATIENT
  Age: 47 Year
  Sex: Male
  Weight: 120 kg

DRUGS (2)
  1. AVASTIN [Suspect]
     Active Substance: BEVACIZUMAB
     Indication: Glioblastoma
     Dosage: EVERY 14 DAYS I.V
     Route: 042
     Dates: start: 202405
  2. OSIMERTINIB [Suspect]
     Active Substance: OSIMERTINIB
     Indication: Glioblastoma
     Dosage: OSIMERTINIB (DOSE UNCLEAR) 1-0-0
     Route: 048
     Dates: start: 20240531, end: 20240913

REACTIONS (4)
  - Respiratory failure [Recovered/Resolved with Sequelae]
  - Dyspnoea [Recovered/Resolved with Sequelae]
  - Pulmonary embolism [Recovered/Resolved with Sequelae]
  - Pneumonia [Recovered/Resolved with Sequelae]

NARRATIVE: CASE EVENT DATE: 20240915
